FAERS Safety Report 18764042 (Version 1)
Quarter: 2021Q1

REPORT INFORMATION
  Report Type: Spontaneous
  Country: US (occurrence: US)
  Receive Date: 20210120
  Receipt Date: 20210120
  Transmission Date: 20210419
  Serious: Yes (Other)
  Sender: FDA-Public Use
  Company Number: US-PURDUE PHARMA-USA-2021-0197990

PATIENT
  Sex: Male

DRUGS (1)
  1. BETADINE [Suspect]
     Active Substance: POVIDONE-IODINE
     Indication: WOUND TREATMENT
     Dosage: UNK, 2/WEEK
     Route: 061
     Dates: start: 202010

REACTIONS (2)
  - Wound complication [Unknown]
  - Confusional state [Unknown]
